FAERS Safety Report 4415033-9 (Version None)
Quarter: 2004Q3

REPORT INFORMATION
  Report Type: 
  Country: None (occurrence: None)
  Receive Date: 20040802
  Receipt Date: 20040802
  Transmission Date: 20050211
  Serious: Yes (Life-Threatening)
  Sender: FDA-Public Use
  Company Number: None

PATIENT
  Sex: Male
  Weight: 100.7 kg

DRUGS (6)
  1. SUCCINYLCHOLINE CHLORIDE [Suspect]
     Indication: INTUBATION
     Dosage: IV
     Route: 042
     Dates: start: 20040718
  2. TPN [Concomitant]
  3. ISOSOURCE [Concomitant]
  4. FLUCONAZOLE [Concomitant]
  5. GENT [Concomitant]
  6. HEPARIN [Concomitant]

REACTIONS (3)
  - BLOOD POTASSIUM INCREASED [None]
  - CARDIO-RESPIRATORY ARREST [None]
  - VENTRICULAR TACHYCARDIA [None]
